FAERS Safety Report 12898244 (Version 2)
Quarter: 2016Q4

REPORT INFORMATION
  Report Type: Spontaneous
  Country: US (occurrence: US)
  Receive Date: 20161031
  Receipt Date: 20161130
  Transmission Date: 20170207
  Serious: Yes (Hospitalization, Other)
  Sender: FDA-Public Use
  Company Number: US-009507513-1610USA013156

PATIENT

DRUGS (1)
  1. STROMECTOL [Suspect]
     Active Substance: IVERMECTIN
     Route: 048

REACTIONS (3)
  - Drug dose omission [Unknown]
  - Adverse event [Unknown]
  - Mechanical ventilation [Unknown]
